FAERS Safety Report 18342389 (Version 1)
Quarter: 2020Q4

REPORT INFORMATION
  Report Type: Other
  Country: CA (occurrence: CA)
  Receive Date: 20201005
  Receipt Date: 20201005
  Transmission Date: 20210113
  Serious: Yes (Other)
  Sender: FDA-Public Use
  Company Number: CA-CELLTRION INC.-2020CA027428

PATIENT

DRUGS (13)
  1. RITUXIMAB (UNKNOWN) [Suspect]
     Active Substance: RITUXIMAB
     Indication: RHEUMATOID ARTHRITIS
     Dosage: 1000.0 MILLIGRAM, 1 EVERY 2 WEEKS
     Route: 042
  2. ACTEMRA [Suspect]
     Active Substance: TOCILIZUMAB
     Indication: PRODUCT USED FOR UNKNOWN INDICATION
     Dosage: UNK
     Route: 065
  3. PREDNISONE. [Concomitant]
     Active Substance: PREDNISONE
  4. SYNTHROID [Concomitant]
     Active Substance: LEVOTHYROXINE SODIUM
  5. XELJANZ [Concomitant]
     Active Substance: TOFACITINIB CITRATE
  6. RAMIPRIL. [Concomitant]
     Active Substance: RAMIPRIL
  7. VOLTAREN [DICLOFENAC] [Concomitant]
     Active Substance: DICLOFENAC SODIUM
  8. ATORVASTATIN CALCIUM. [Concomitant]
     Active Substance: ATORVASTATIN CALCIUM
  9. FOLIC ACID. [Concomitant]
     Active Substance: FOLIC ACID
  10. NITROGLYCERIN. [Concomitant]
     Active Substance: NITROGLYCERIN
  11. TYLENOL [Concomitant]
     Active Substance: ACETAMINOPHEN
  12. BRILINTA [Concomitant]
     Active Substance: TICAGRELOR
  13. METHOTREXATE. [Concomitant]
     Active Substance: METHOTREXATE

REACTIONS (5)
  - Swollen joint count [Unknown]
  - Coma [Unknown]
  - Rheumatoid arthritis [Unknown]
  - Cellulitis [Unknown]
  - Fungal infection [Unknown]
